FAERS Safety Report 16690846 (Version 1)
Quarter: 2019Q3

REPORT INFORMATION
  Report Type: Report from Study
  Country: None (occurrence: IT)
  Receive Date: 20190811
  Receipt Date: 20190811
  Transmission Date: 20191004
  Serious: Yes (Death)
  Sender: FDA-Public Use
  Company Number: IT-ABBVIE-19K-083-2883740-00

PATIENT
  Sex: Male

DRUGS (1)
  1. DUODOPA [Suspect]
     Active Substance: CARBIDOPA\LEVODOPA
     Indication: PARKINSON^S DISEASE
     Dosage: MD 5+3?CR 3.8?ED 2.4?20 MG/ML 5 MG/ML
     Route: 050
     Dates: start: 20180508, end: 20190805

REACTIONS (1)
  - General physical condition abnormal [Fatal]
